FAERS Safety Report 6464987-8 (Version None)
Quarter: 2009Q4

REPORT INFORMATION
  Report Type: 
  Country: None (occurrence: None)
  Receive Date: 20091124
  Receipt Date: 20091109
  Transmission Date: 20100525
  Serious: Yes (Hospitalization)
  Sender: FDA-Public Use
  Company Number: 2009AL007132

PATIENT
  Age: 49 Year
  Sex: Male

DRUGS (7)
  1. RIFAMPIN [Suspect]
     Indication: MYCOBACTERIUM MARINUM INFECTION
     Dosage: 600 MG
  2. CLARITHROMYCIN [Concomitant]
  3. DOXYCYCLINE [Concomitant]
  4. ETHAMBUTOL HYDROCHLORIDE [Concomitant]
  5. PREDNISOLONE [Concomitant]
  6. METHOTREXATE [Concomitant]
  7. INFLIXIMAB [Concomitant]

REACTIONS (15)
  - ACIDOSIS [None]
  - AZOTAEMIA [None]
  - BLOOD 1,25-DIHYDROXYCHOLECALCIFEROL DECREASED [None]
  - BLOOD 25-HYDROXYCHOLECALCIFEROL DECREASED [None]
  - BLOOD CALCIUM DECREASED [None]
  - BLOOD PARATHYROID HORMONE DECREASED [None]
  - CONFUSIONAL STATE [None]
  - DECREASED APPETITE [None]
  - HAEMODIALYSIS [None]
  - HYPERCALCAEMIA [None]
  - HYPERTENSION [None]
  - MYCOBACTERIUM MARINUM INFECTION [None]
  - RENAL FAILURE [None]
  - SCAR [None]
  - WEIGHT DECREASED [None]
